FAERS Safety Report 8512730-0 (Version None)
Quarter: 2012Q3

REPORT INFORMATION
  Report Type: 
  Country: None (occurrence: None)
  Receive Date: 20120716
  Receipt Date: 20120622
  Transmission Date: 20120928
  Serious: Yes (Other)
  Sender: FDA-Public Use
  Company Number: BR-MSD-2012SP019935

PATIENT
  Sex: Female
  Weight: 73 kg

DRUGS (5)
  1. PEG-INTRON [Suspect]
     Indication: HEPATITIS C
     Dosage: UNK UNK, UNKNOWN
     Route: 058
     Dates: start: 20070101
  2. RIBAVIRIN [Suspect]
     Indication: HEPATITIS C
     Dosage: UNK UNK, UNKNOWN
     Route: 048
     Dates: start: 20070101
  3. PEG-INTRON [Suspect]
     Dosage: UNK UNK, UNKNOWN
     Route: 058
     Dates: start: 20120401
  4. VICTRELIS [Suspect]
     Indication: HEPATITIS C
     Dosage: UNK UNK, UNKNOWN
     Route: 048
     Dates: start: 20120401
  5. SERTRALINE HYDROCHLORIDE [Concomitant]
     Indication: DEPRESSION
     Dosage: UPDATE (22JUN2012): FORM AND DOSE UNKNOWN
     Route: 048
     Dates: start: 20070101

REACTIONS (15)
  - GASTROINTESTINAL DISORDER [None]
  - ERYTHEMA [None]
  - DEPRESSED MOOD [None]
  - CONSTIPATION [None]
  - UTERINE CANCER [None]
  - WEIGHT DECREASED [None]
  - CERVIX CARCINOMA [None]
  - IMMUNE SYSTEM DISORDER [None]
  - SALIVA ALTERED [None]
  - DYSGEUSIA [None]
  - ALOPECIA [None]
  - FATIGUE [None]
  - THERAPEUTIC PRODUCT INEFFECTIVE [None]
  - COUGH [None]
  - WEIGHT INCREASED [None]
